FAERS Safety Report 9708345 (Version 1)
Quarter: 2013Q4

REPORT INFORMATION
  Report Type: Spontaneous
  Country: CH (occurrence: CH)
  Receive Date: 20131125
  Receipt Date: 20131125
  Transmission Date: 20140711
  Serious: Yes (Death, Other)
  Sender: FDA-Public Use
  Company Number: CH-TEVA-445429ISR

PATIENT
  Age: 25 Year
  Sex: Male

DRUGS (3)
  1. VENLAFAXINE [Suspect]
     Dosage: 225 MILLIGRAM DAILY;
     Route: 065
     Dates: start: 20120919, end: 2012
  2. VENLAFAXINE [Suspect]
     Dosage: 150 MILLIGRAM DAILY;
     Route: 065
     Dates: start: 201208, end: 20120918
  3. TRIMIPRAMINE [Suspect]
     Indication: ANTIDEPRESSANT THERAPY
     Dosage: 25 MILLIGRAM DAILY;
     Route: 065
     Dates: start: 201209, end: 2012

REACTIONS (4)
  - Completed suicide [Fatal]
  - Head injury [Fatal]
  - Dependence [Unknown]
  - Poisoning [Unknown]
